FAERS Safety Report 5612094-6 (Version None)
Quarter: 2008Q1

REPORT INFORMATION
  Report Type: 
  Country: None (occurrence: None)
  Receive Date: 20080204
  Receipt Date: 20080129
  Transmission Date: 20080703
  Serious: Yes (Other)
  Sender: FDA-Public Use
  Company Number: PHNU2008DE00591

PATIENT
  Age: 62 Year
  Sex: Male
  Weight: 100 kg

DRUGS (3)
  1. RASILEZ [Suspect]
     Indication: HYPERTENSION
     Dosage: 300 MG/DAY
     Route: 048
     Dates: start: 20071218, end: 20071220
  2. RAMIPRIL [Concomitant]
  3. FELODIPINE [Concomitant]

REACTIONS (7)
  - ANURIA [None]
  - BLOOD PRESSURE INADEQUATELY CONTROLLED [None]
  - FAECES DISCOLOURED [None]
  - NAUSEA [None]
  - RENAL FAILURE ACUTE [None]
  - TACHYCARDIA [None]
  - URINE OUTPUT DECREASED [None]
